FAERS Safety Report 6180043-0 (Version None)
Quarter: 2009Q2

REPORT INFORMATION
  Report Type: 
  Country: None (occurrence: None)
  Receive Date: 20090501
  Receipt Date: 20090420
  Transmission Date: 20091009
  Serious: Yes (Other)
  Sender: FDA-Public Use
  Company Number: DSA_33525_2009

PATIENT
  Sex: Female

DRUGS (2)
  1. CARDIZEM [Suspect]
     Indication: DRUG USE FOR UNKNOWN INDICATION
     Dosage: (DF), (DF)
     Dates: start: 20071201, end: 20080501
  2. CARDIZEM [Suspect]
     Indication: DRUG USE FOR UNKNOWN INDICATION
     Dosage: (DF), (DF)
     Dates: start: 20060101

REACTIONS (5)
  - ABNORMAL DREAMS [None]
  - BLOOD PRESSURE INCREASED [None]
  - CONSTIPATION [None]
  - HEADACHE [None]
  - MIDDLE INSOMNIA [None]
